FAERS Safety Report 6394629-1 (Version None)
Quarter: 2009Q4

REPORT INFORMATION
  Report Type: 
  Country: None (occurrence: None)
  Receive Date: 20091009
  Receipt Date: 20090929
  Transmission Date: 20100525
  Serious: Yes (Other)
  Sender: FDA-Public Use
  Company Number: JP-ROCHE-660175

PATIENT
  Age: 9 Year
  Sex: Male

DRUGS (3)
  1. INTERFERON ALFA [Suspect]
     Indication: SUBACUTE SCLEROSING PANENCEPHALITIS
     Dosage: ROUTE: INTRAVENTRICULAR
     Route: 050
  2. INTERFERON ALFA [Suspect]
     Dosage: ROUTE: INTRATHECAL INFUSION.
     Route: 050
  3. INOSINE PRANOBEX [Suspect]
     Indication: SUBACUTE SCLEROSING PANENCEPHALITIS
     Route: 048

REACTIONS (5)
  - MENINGITIS [None]
  - NAUSEA [None]
  - PYREXIA [None]
  - SUBACUTE SCLEROSING PANENCEPHALITIS [None]
  - VOMITING [None]
